FAERS Safety Report 8400828-7 (Version None)
Quarter: 2012Q2

REPORT INFORMATION
  Report Type: 
  Country: None (occurrence: None)
  Receive Date: 20120531
  Receipt Date: 20120529
  Transmission Date: 20120825
  Serious: Yes (Death, Hospitalization)
  Sender: FDA-Public Use
  Company Number: US-ROCHE-1067806

PATIENT
  Sex: Male

DRUGS (1)
  1. ZELBORAF [Suspect]
     Indication: PRODUCT USED FOR UNKNOWN INDICATION

REACTIONS (7)
  - INTESTINAL OBSTRUCTION [None]
  - LUNG NEOPLASM [None]
  - MASS [None]
  - SUNBURN [None]
  - DEATH [None]
  - NAUSEA [None]
  - SKIN DISORDER [None]
